FAERS Safety Report 8582353-6 (Version None)
Quarter: 2012Q3

REPORT INFORMATION
  Report Type: 
  Country: None (occurrence: None)
  Receive Date: 20120809
  Receipt Date: 20120801
  Transmission Date: 20120928
  Serious: Yes (Hospitalization)
  Sender: FDA-Public Use
  Company Number: BR-JNJFOC-20120802721

PATIENT
  Age: 72 Year
  Sex: Male

DRUGS (3)
  1. ZYTIGA [Suspect]
     Indication: PROSTATE CANCER
     Route: 048
     Dates: start: 20120701
  2. PREDNISONE TAB [Concomitant]
     Indication: PROSTATE CANCER
     Route: 065
     Dates: start: 20120601
  3. ZYTIGA [Suspect]
     Route: 048
     Dates: start: 20120601, end: 20120601

REACTIONS (3)
  - VOMITING [None]
  - OEDEMA PERIPHERAL [None]
  - NAUSEA [None]
